FAERS Safety Report 24184122 (Version 1)
Quarter: 2024Q3

REPORT INFORMATION
  Report Type: Report from Study
  Country: JP (occurrence: JP)
  Receive Date: 20240807
  Receipt Date: 20240807
  Transmission Date: 20241017
  Serious: Yes (Hospitalization)
  Sender: EMD SERONO INC
  Company Number: JP-Merck Healthcare KGaA-2024041393

PATIENT
  Age: 8 Decade
  Sex: Male

DRUGS (2)
  1. BAVENCIO [Suspect]
     Active Substance: AVELUMAB
     Indication: Renal cancer
     Route: 041
     Dates: start: 20240430, end: 20240628
  2. INLYTA [Concomitant]
     Active Substance: AXITINIB
     Indication: Renal cancer
     Dates: start: 20240430, end: 20240628

REACTIONS (1)
  - Perforation [Recovered/Resolved]

NARRATIVE: CASE EVENT DATE: 20240628
